FAERS Safety Report 16388148 (Version 1)
Quarter: 2019Q2

REPORT INFORMATION
  Report Type: Report from Study
  Country: US (occurrence: US)
  Receive Date: 20190604
  Receipt Date: 20190604
  Transmission Date: 20190711
  Serious: Yes (Hospitalization)
  Sender: FDA-Public Use
  Company Number: US-ROCHE-2072922

PATIENT
  Age: 67 Year
  Sex: Male
  Weight: 94.1 kg

DRUGS (41)
  1. CHRONULAC [Concomitant]
     Active Substance: LACTULOSE
     Route: 048
     Dates: start: 20170613
  2. METRONIDAZOLE. [Concomitant]
     Active Substance: METRONIDAZOLE
     Route: 042
  3. PANTOPRAZOLE [Concomitant]
     Active Substance: PANTOPRAZOLE
     Route: 048
  4. ULTRAM [Concomitant]
     Active Substance: TRAMADOL HYDROCHLORIDE
  5. CYANOCOBALAMIN. [Concomitant]
     Active Substance: CYANOCOBALAMIN
  6. METFORMIN HYDROCHLORIDE. [Concomitant]
     Active Substance: METFORMIN HYDROCHLORIDE
     Dosage: 500 MG BID/MEAL
     Route: 065
  7. CALCIUM GLUCONATE. [Concomitant]
     Active Substance: CALCIUM GLUCONATE
     Dosage: IN SODIUM CHLORIDE 0.9% IN 100 ML
     Route: 042
  8. CALCIUM GLUCONATE. [Concomitant]
     Active Substance: CALCIUM GLUCONATE
     Dosage: IN SODIUM CHLORIDE 0.9% IN 100 ML
     Route: 042
  9. COLACE [Concomitant]
     Active Substance: DOCUSATE SODIUM
     Route: 048
  10. SIMETHICONE (DIMETHICONE) [Concomitant]
     Active Substance: DIMETHICONE
     Route: 048
  11. COBIMETINIB. [Suspect]
     Active Substance: COBIMETINIB
     Indication: CHOLANGIOCARCINOMA
     Dosage: ONCE DAILY FOR 21 DAYS ON AND 7 DAYS OFF IN EACH 28-DAY CYCLE?ALSO RECIEVED ON 24/JAN/2018?DATE OF M
     Route: 048
     Dates: start: 20171101
  12. SODIUM CHLORIDE. [Concomitant]
     Active Substance: SODIUM CHLORIDE
     Route: 042
  13. LOSARTAN. [Concomitant]
     Active Substance: LOSARTAN
     Route: 048
  14. LIORESAL [Concomitant]
     Active Substance: BACLOFEN
     Route: 065
  15. ROBITUSSIN (GUAIFENESIN) [Concomitant]
     Active Substance: GUAIFENESIN
     Route: 048
  16. ULTRAM [Concomitant]
     Active Substance: TRAMADOL HYDROCHLORIDE
     Indication: BREAKTHROUGH PAIN
     Route: 048
     Dates: start: 20170930
  17. INSULIN GLARGINE [Concomitant]
     Active Substance: INSULIN GLARGINE
     Dosage: 100 UNIT /ML, 14 UNIT UNDER SKIN NIGHTLY
     Route: 058
  18. PROTONIX [Concomitant]
     Active Substance: PANTOPRAZOLE SODIUM
     Route: 042
  19. LOMOTIL [ATROPINE SULFATE;DIPHENOXYLATE HYDROCHLORIDE] [Concomitant]
     Dosage: 2.5-0.025 MG PER TABLET 2 TABLET
     Route: 048
  20. VISTARIL [HYDROXYZINE EMBONATE] [Concomitant]
     Route: 048
  21. VEMURAFENIB. [Suspect]
     Active Substance: VEMURAFENIB
     Indication: CHOLANGIOCARCINOMA
     Dosage: TWICE DAILY (BID) IN EACH 28-DAY CYCLE?ALSO RECIEVED ON 24/JAN/2018?DATE OF MOST RECENT DOSE: 21/AUG
     Route: 048
     Dates: start: 20171101
  22. INSULIN LISPRO [Concomitant]
     Active Substance: INSULIN LISPRO
     Dosage: 0-10 UNITS
     Route: 058
  23. ALBUTEROL [SALBUTAMOL] [Concomitant]
     Active Substance: ALBUTEROL
     Dosage: 5 MG/ML
     Route: 065
  24. MEROPENEM. [Concomitant]
     Active Substance: MEROPENEM
     Route: 042
  25. OMEGA 3 [DOCOSAHEXAENOIC ACID;EICOSAPENTAENOIC ACID] [Concomitant]
     Route: 065
  26. ACETAMINOPHEN. [Concomitant]
     Active Substance: ACETAMINOPHEN
     Route: 048
  27. EMLA [LIDOCAINE;PRILOCAINE] [Concomitant]
     Route: 061
     Dates: start: 20170524
  28. CYANOCOBALAMIN. [Concomitant]
     Active Substance: CYANOCOBALAMIN
     Route: 048
  29. NORMAL SALINE [Concomitant]
     Active Substance: SODIUM CHLORIDE
  30. COZAAR [Concomitant]
     Active Substance: LOSARTAN POTASSIUM
  31. VANCOMYCIN [Concomitant]
     Active Substance: VANCOMYCIN
  32. DULCOLAX (BISACODYL) [Concomitant]
     Active Substance: BISACODYL
     Route: 048
  33. COZAAR [Concomitant]
     Active Substance: LOSARTAN POTASSIUM
     Route: 048
  34. AMBIEN [Concomitant]
     Active Substance: ZOLPIDEM TARTRATE
     Route: 048
  35. NORVASC [Concomitant]
     Active Substance: AMLODIPINE BESYLATE
     Route: 048
     Dates: start: 20170712
  36. ENOXAPARIN [Concomitant]
     Active Substance: ENOXAPARIN
     Route: 058
  37. PANTOPRAZOLE [Concomitant]
     Active Substance: PANTOPRAZOLE
     Route: 042
  38. METFORMIN [Concomitant]
     Active Substance: METFORMIN HYDROCHLORIDE
     Route: 065
  39. PIPERACILLIN/TAZOBACTAM [Concomitant]
     Active Substance: PIPERACILLIN SODIUM\TAZOBACTAM SODIUM
     Route: 042
  40. LOVENOX [Concomitant]
     Active Substance: ENOXAPARIN SODIUM
     Route: 058
  41. MAGNESIUM SULFATE. [Concomitant]
     Active Substance: MAGNESIUM SULFATE
     Route: 042

REACTIONS (4)
  - Bacteraemia [Recovered/Resolved]
  - Device related sepsis [Recovered/Resolved]
  - Pyrexia [Recovered/Resolved]
  - Bacteraemia [Recovered/Resolved]

NARRATIVE: CASE EVENT DATE: 20180206
